FAERS Safety Report 20306208 (Version 2)
Quarter: 2022Q1

REPORT INFORMATION
  Report Type: Report from Study
  Country: IT (occurrence: IT)
  Receive Date: 20220106
  Receipt Date: 20220121
  Transmission Date: 20220423
  Serious: Yes (Life-Threatening, Other)
  Sender: FDA-Public Use
  Company Number: IT-TEVA-2021-IT-1995587

PATIENT

DRUGS (2)
  1. TEMOZOLOMIDE [Suspect]
     Active Substance: TEMOZOLOMIDE
     Indication: Glioblastoma
     Route: 065
  2. REGORAFENIB [Suspect]
     Active Substance: REGORAFENIB
     Indication: Glioblastoma
     Dosage: 160 MILLIGRAM DAILY; CYCLICAL THERAPY, FOR THE FIRST 3 WEEKS OF EACH 4-WEEK CYCLE
     Route: 048

REACTIONS (3)
  - Rash maculo-papular [Unknown]
  - Drug ineffective [Unknown]
  - Off label use [Unknown]
